FAERS Safety Report 8915115 (Version 1)
Quarter: 2012Q4

REPORT INFORMATION
  Report Type: 
  Country: US (occurrence: US)
  Receive Date: 20121116
  Receipt Date: 20121116
  Transmission Date: 20130627
  Serious: Yes (Other)
  Sender: FDA-Public Use
  Company Number: US-ASTRAZENECA-2012SE85153

PATIENT
  Age: 79 Year
  Sex: Male

DRUGS (3)
  1. SEROQUEL [Suspect]
     Indication: DEPRESSION
     Route: 048
     Dates: start: 20121022
  2. SEROQUEL [Suspect]
     Indication: DEPRESSION
     Dosage: AT LEAST 24 TABLETS
     Route: 048
     Dates: start: 20121103
  3. UNKNOWN ANTIDEPRESSANT [Concomitant]
     Indication: DEPRESSION
     Dosage: DAILY

REACTIONS (2)
  - Overdose [Unknown]
  - Drug screen positive [Unknown]
